FAERS Safety Report 17519150 (Version 1)
Quarter: 2020Q1

REPORT INFORMATION
  Report Type: Spontaneous
  Country: AU (occurrence: AU)
  Receive Date: 20200310
  Receipt Date: 20200310
  Transmission Date: 20200409
  Serious: Yes (Life-Threatening, Other)
  Sender: FDA-Public Use
  Company Number: AU-ROCHE-2564613

PATIENT
  Sex: Female

DRUGS (2)
  1. OMALIZUMAB. [Suspect]
     Active Substance: OMALIZUMAB
     Indication: PRODUCT USED FOR UNKNOWN INDICATION
     Route: 065
  2. KETOTIFEN [Suspect]
     Active Substance: KETOTIFEN
     Indication: MAST CELL ACTIVATION SYNDROME
     Dosage: UNK
     Route: 065

REACTIONS (10)
  - Diarrhoea [Unknown]
  - Dizziness [Unknown]
  - Wheezing [Unknown]
  - Abdominal pain [Unknown]
  - Anaphylactic reaction [Unknown]
  - Therapeutic product effect incomplete [Unknown]
  - Sinus pain [Unknown]
  - Mast cell activation syndrome [Unknown]
  - Pruritus [Unknown]
  - Dyspnoea [Unknown]
